FAERS Safety Report 19185245 (Version 1)
Quarter: 2021Q2

REPORT INFORMATION
  Report Type: Spontaneous
  Country: LV (occurrence: LV)
  Receive Date: 20210427
  Receipt Date: 20210427
  Transmission Date: 20210717
  Serious: Yes (Hospitalization)
  Sender: FDA-Public Use
  Company Number: LV-TEVA-2021-LV-1904725

PATIENT
  Age: 46 Year
  Sex: Female
  Weight: 68 kg

DRUGS (4)
  1. IMPLICOR 25 MG/5 MG APVALKOTAS TABLETES [Concomitant]
     Indication: CORONARY ARTERY DISEASE
     Dosage: 1 DOSAGE FORMS DAILY; (25 MG/5 MG) FOR ACTIVE INGREDIENT METOPROLOL TARTRATE THE STRENGTH IS 25 MILL
     Route: 048
     Dates: start: 20200821, end: 20210329
  2. ATORVASTATIN TEVA 20 MG APVALKOTAS TABLETES [Suspect]
     Active Substance: ATORVASTATIN
     Indication: CORONARY ARTERY DISEASE
     Dosage: 20 MG
     Route: 048
     Dates: start: 20200821, end: 20210328
  3. ESCADRA 20 MG ZARNAS SKISTOSAS CIETAS KAPSULAS [Concomitant]
     Dosage: 20 MG
     Route: 048
  4. GREPID 75 MG [Concomitant]
     Indication: ISCHAEMIC HEART DISEASE PROPHYLAXIS
     Dosage: 75 MG
     Route: 048
     Dates: start: 20200821, end: 20210329

REACTIONS (5)
  - Rhabdomyolysis [Recovered/Resolved]
  - Hypokalaemia [Recovered/Resolved]
  - Muscular weakness [Recovered/Resolved]
  - Skin exfoliation [Unknown]
  - Rash maculo-papular [Unknown]

NARRATIVE: CASE EVENT DATE: 202008
